FAERS Safety Report 7297900-4 (Version None)
Quarter: 2011Q1

REPORT INFORMATION
  Report Type: 
  Country: None (occurrence: None)
  Receive Date: 20110217
  Receipt Date: 20101214
  Transmission Date: 20110831
  Serious: No
  Sender: FDA-Public Use
  Company Number: US-KINGPHARMUSA00001-K201001505

PATIENT
  Age: 53 Year
  Sex: Male
  Weight: 104.31 kg

DRUGS (3)
  1. FLECTOR [Suspect]
     Indication: ARTHRITIS
     Dosage: 2 PATCHES, Q12H
     Dates: start: 20101201
  2. FLECTOR [Suspect]
     Indication: PAIN IN EXTREMITY
     Dosage: 2 PATCHES, Q12H
     Route: 061
     Dates: start: 20101101, end: 20101201
  3. METHADONE HYDROCHLORIDE [Concomitant]
     Indication: SUBSTANCE ABUSE
     Dosage: 166 MG, QD
     Route: 048

REACTIONS (2)
  - PRURITUS [None]
  - URTICARIA [None]
